FAERS Safety Report 19076094 (Version 2)
Quarter: 2021Q2

REPORT INFORMATION
  Report Type: Spontaneous
  Country: PT (occurrence: PT)
  Receive Date: 20210331
  Receipt Date: 20210407
  Transmission Date: 20210717
  Serious: No
  Sender: FDA-Public Use
  Company Number: PT-BRISTOL-MYERS SQUIBB COMPANY-BMS-2021-015793

PATIENT
  Age: 78 Year
  Sex: Female

DRUGS (25)
  1. PERINDOPRIL [Suspect]
     Active Substance: PERINDOPRIL
     Indication: HYPERTENSION
     Dosage: UNK UNK, QD
     Route: 065
  2. SIMVASTATIN. [Suspect]
     Active Substance: SIMVASTATIN
     Indication: HYPERCHOLESTEROLAEMIA
     Dosage: UNK
     Route: 065
  3. SERTRALINE [Suspect]
     Active Substance: SERTRALINE HYDROCHLORIDE
     Indication: DEPRESSION
     Dosage: UNK
     Route: 065
  4. PARACETAMOL + TRAMADOL [Suspect]
     Active Substance: ACETAMINOPHEN\TRAMADOL
     Indication: BACK PAIN
     Dosage: UNK
     Route: 065
  5. DICLOFENAC [Suspect]
     Active Substance: DICLOFENAC
     Dosage: UNK UNK, BID
     Route: 065
  6. METFORMIN;SITAGLIPTIN [Suspect]
     Active Substance: METFORMIN\SITAGLIPTIN
     Indication: DIABETES MELLITUS
     Dosage: BREAKFAST AND DINNER
     Route: 065
  7. MEBEVERINE HYDROCHLORIDE [Suspect]
     Active Substance: MEBEVERINE HYDROCHLORIDE
     Indication: GASTROINTESTINAL DISORDER
     Dosage: UNK
     Route: 065
  8. PARACETAMOL [Suspect]
     Active Substance: ACETAMINOPHEN
     Indication: BACK PAIN
     Dosage: UNK
     Route: 065
  9. BISOPROLOL [Suspect]
     Active Substance: BISOPROLOL
     Indication: ARRHYTHMIA
     Dosage: BREAKFAST
     Route: 065
  10. ETHYL LOFLAZEPATE [Suspect]
     Active Substance: ETHYL LOFLAZEPATE
     Indication: ANXIETY
     Dosage: SOS
     Route: 065
  11. DIGOXIN. [Suspect]
     Active Substance: DIGOXIN
     Indication: ARRHYTHMIA
     Dosage: DINNER
     Route: 065
  12. OMEPRAZOLE. [Suspect]
     Active Substance: OMEPRAZOLE
     Indication: DYSPEPSIA
     Dosage: BREAKFAST
     Route: 065
  13. OMEPRAZOLE. [Suspect]
     Active Substance: OMEPRAZOLE
     Indication: CHRONIC GASTRITIS
  14. MAGNESIUM [Suspect]
     Active Substance: MAGNESIUM
     Indication: FATIGUE
     Dosage: UNK
     Route: 065
  15. FUROSEMIDE. [Suspect]
     Active Substance: FUROSEMIDE
     Indication: HYPERTENSION
     Dosage: UNK UNK, QD
     Route: 065
  16. AMLODIPINE [Suspect]
     Active Substance: AMLODIPINE BESYLATE
     Dosage: DINNER
     Route: 065
  17. TRAZODONE [Suspect]
     Active Substance: TRAZODONE HYDROCHLORIDE
     Indication: INSOMNIA
     Dosage: BEDTIME
     Route: 065
  18. DICLOFENAC [Suspect]
     Active Substance: DICLOFENAC
     Indication: BACK PAIN
     Dosage: SOS
     Route: 065
  19. METFORMIN [Suspect]
     Active Substance: METFORMIN HYDROCHLORIDE
     Indication: DIABETES MELLITUS
     Dosage: LUNCH
     Route: 065
  20. ETORICOXIB. [Suspect]
     Active Substance: ETORICOXIB
     Indication: BACK PAIN
     Dosage: UNK
     Route: 065
  21. IBUPROFEN. [Suspect]
     Active Substance: IBUPROFEN
     Indication: BACK PAIN
     Dosage: UNK
     Route: 065
  22. WARFARIN SODIUM. [Suspect]
     Active Substance: WARFARIN SODIUM
     Indication: COAGULATION TEST
     Dosage: 5 MILLIGRAM, QD
     Route: 065
  23. ZOLPIDEM [Suspect]
     Active Substance: ZOLPIDEM TARTRATE
     Indication: INSOMNIA
     Dosage: BEDTIME
     Route: 065
  24. AMLODIPINE [Suspect]
     Active Substance: AMLODIPINE BESYLATE
     Indication: ARRHYTHMIA
     Dosage: 20 MILLIGRAM, QD
     Route: 065
  25. ATORVASTATIN [Suspect]
     Active Substance: ATORVASTATIN
     Indication: HYPERCHOLESTEROLAEMIA
     Dosage: DINNER
     Route: 065

REACTIONS (3)
  - Intentional product misuse [Unknown]
  - Medication error [Unknown]
  - Electrolyte imbalance [Unknown]
